FAERS Safety Report 24328209 (Version 1)
Quarter: 2024Q3

REPORT INFORMATION
  Report Type: Spontaneous
  Country: PT (occurrence: PT)
  Receive Date: 20240917
  Receipt Date: 20240917
  Transmission Date: 20241017
  Serious: Yes (Hospitalization)
  Sender: FRESENIUS KABI
  Company Number: PT-JNJFOC-20240853065

PATIENT
  Age: 49 Year
  Sex: Female

DRUGS (7)
  1. MIDAZOLAM [Suspect]
     Active Substance: MIDAZOLAM
     Indication: Product used for unknown indication
     Dosage: BETWEEN 15 AND 30 MG?UNKNOWN
     Route: 065
  2. SPRAVATO [Suspect]
     Active Substance: ESKETAMINE
     Indication: Major depression
     Dosage: NASAL SPRAY?INTRA-NASAL
  3. SPRAVATO [Suspect]
     Active Substance: ESKETAMINE
     Dosage: INTRA-NASAL?NASAL SPRAY
     Dates: start: 202407
  4. LORAZEPAM [Suspect]
     Active Substance: LORAZEPAM
     Indication: Product used for unknown indication
     Dosage: TAKING 10 MG INSTEAD OF PRESCRIBED 2.5 MG?UNKNOWN
     Route: 065
  5. FLUOXETINE [Concomitant]
     Active Substance: FLUOXETINE HYDROCHLORIDE
     Indication: Product used for unknown indication
  6. VENLAFAXINE [Concomitant]
     Active Substance: VENLAFAXINE HYDROCHLORIDE
     Indication: Product used for unknown indication
  7. QUETIAPINE [Concomitant]
     Active Substance: QUETIAPINE
     Indication: Product used for unknown indication

REACTIONS (4)
  - Major depression [Unknown]
  - Sedation [Unknown]
  - Drug abuse [Unknown]
  - Bulimia nervosa [Recovered/Resolved]

NARRATIVE: CASE EVENT DATE: 20240101
